FAERS Safety Report 8290160-7 (Version None)
Quarter: 2012Q2

REPORT INFORMATION
  Report Type: 
  Country: None (occurrence: None)
  Receive Date: 20120417
  Receipt Date: 20120405
  Transmission Date: 20120825
  Serious: Yes (Other)
  Sender: FDA-Public Use
  Company Number: FR-JNJFOC-20120403501

PATIENT
  Age: 32 Year
  Sex: Female

DRUGS (6)
  1. REMICADE [Suspect]
     Dosage: FIFTH INFUSION
     Route: 042
     Dates: start: 20120218
  2. PREVISCAN (FLUINDIONE) [Concomitant]
     Route: 065
  3. IMURAN [Concomitant]
     Indication: PANCREATITIS
     Route: 065
  4. REMICADE [Suspect]
     Indication: COLITIS ULCERATIVE
     Route: 042
  5. PENTASA [Concomitant]
     Indication: PANCREATITIS
     Route: 065
  6. CORTICOSTEROIDS [Concomitant]
     Route: 065

REACTIONS (4)
  - MYALGIA [None]
  - ARTHRITIS [None]
  - PYREXIA [None]
  - ERECTILE DYSFUNCTION [None]
